FAERS Safety Report 7550128-2 (Version None)
Quarter: 2011Q2

REPORT INFORMATION
  Report Type: 
  Country: None (occurrence: None)
  Receive Date: 20110615
  Receipt Date: 20110603
  Transmission Date: 20111010
  Serious: Yes (Other)
  Sender: FDA-Public Use
  Company Number: FR-KINGPHARMUSA00001-K201100679

PATIENT
  Sex: Male
  Weight: 101 kg

DRUGS (22)
  1. ALTACE [Suspect]
     Indication: CARDIAC DISORDER
     Dosage: 2.5 MG, QD
     Route: 048
  2. BISOPROLOL FUMARATE [Suspect]
     Indication: ACUTE MYOCARDIAL INFARCTION
  3. CLOBETASOL PROPIONATE [Concomitant]
  4. ACETAMINOPHEN [Concomitant]
  5. ALTACE [Suspect]
     Dosage: 2.5 MG, QAM
  6. ACHILLEA MILLEFOLIUM [Concomitant]
  7. MEPERIDINE HCL [Concomitant]
     Dosage: 50 MG, UNK
  8. PSYLLIUM HUSK [Concomitant]
     Indication: IRRITABLE BOWEL SYNDROME
  9. PERINDOPRIL ARGININE [Concomitant]
     Indication: MYOCARDIAL ISCHAEMIA
     Dosage: 5 MG, UNK
     Dates: start: 20090601
  10. PROPRANOLOL [Concomitant]
  11. MORPHINE [Concomitant]
  12. BISOPROLOL FUMARATE [Suspect]
     Indication: MYOCARDIAL ISCHAEMIA
     Dosage: 2.5 MG, QD
     Route: 048
     Dates: end: 20100801
  13. TRAMADOL HCL [Concomitant]
     Dosage: 50 MG, UNK
  14. LACTOBACILLUS [Concomitant]
     Indication: IRRITABLE BOWEL SYNDROME
  15. HYDROMOL [Concomitant]
  16. IBUPROFEN [Concomitant]
  17. PEPPERMINT OIL [Concomitant]
  18. NEBIVOLOL HCL [Suspect]
     Dosage: 5 MG, UNK
     Route: 048
     Dates: start: 20100209
  19. ASPIRIN [Concomitant]
     Indication: MYOCARDIAL ISCHAEMIA
     Dosage: 75 MG, UNK
     Dates: start: 20081101
  20. ROSUVASTATIN [Concomitant]
     Dosage: 10 MG, UNK
  21. CLOPIDOGREL [Concomitant]
  22. PROBIOTICS [Concomitant]

REACTIONS (5)
  - LIGAMENT INJURY [None]
  - PSORIASIS [None]
  - OSTEOARTHRITIS [None]
  - JOINT SWELLING [None]
  - FALL [None]
